FAERS Safety Report 6287539-1 (Version None)
Quarter: 2009Q3

REPORT INFORMATION
  Report Type: 
  Country: None (occurrence: None)
  Receive Date: 20090727
  Receipt Date: 20090713
  Transmission Date: 20100115
  Serious: Yes (Hospitalization)
  Sender: FDA-Public Use
  Company Number: HECT-1000059

PATIENT
  Age: 81 Year
  Sex: Female

DRUGS (2)
  1. HECTOROL [Suspect]
     Indication: HYPERPARATHYROIDISM SECONDARY
     Dosage: 0.5 MCG, 3X/W, ORAL
     Route: 048
     Dates: start: 20070101
  2. HECTOROL [Suspect]
     Indication: RENAL FAILURE
     Dosage: 0.5 MCG, 3X/W, ORAL
     Route: 048
     Dates: start: 20070101

REACTIONS (1)
  - CEREBROVASCULAR ACCIDENT [None]
